FAERS Safety Report 20047589 (Version 1)
Quarter: 2021Q4

REPORT INFORMATION
  Report Type: Spontaneous
  Country: US (occurrence: US)
  Receive Date: 20211109
  Receipt Date: 20211109
  Transmission Date: 20220303
  Serious: No
  Sender: FDA-Public Use
  Company Number: US-JNJFOC-20211106639

PATIENT
  Age: 48 Year
  Sex: Female

DRUGS (22)
  1. FAMOTIDINE [Suspect]
     Active Substance: FAMOTIDINE
     Indication: Product used for unknown indication
     Dosage: UNK
     Route: 065
  2. CETIRIZINE HYDROCHLORIDE [Suspect]
     Active Substance: CETIRIZINE HYDROCHLORIDE
     Indication: Paraesthesia
     Route: 065
  3. CETIRIZINE HYDROCHLORIDE [Suspect]
     Active Substance: CETIRIZINE HYDROCHLORIDE
     Indication: Angioedema
  4. CETIRIZINE HYDROCHLORIDE [Suspect]
     Active Substance: CETIRIZINE HYDROCHLORIDE
     Indication: Pharyngeal swelling
  5. CETIRIZINE HYDROCHLORIDE [Suspect]
     Active Substance: CETIRIZINE HYDROCHLORIDE
     Indication: Swollen tongue
  6. XYZAL [Suspect]
     Active Substance: LEVOCETIRIZINE DIHYDROCHLORIDE
     Indication: Paraesthesia
     Route: 065
  7. XYZAL [Suspect]
     Active Substance: LEVOCETIRIZINE DIHYDROCHLORIDE
     Indication: Angioedema
  8. XYZAL [Suspect]
     Active Substance: LEVOCETIRIZINE DIHYDROCHLORIDE
     Indication: Pharyngeal swelling
  9. XYZAL [Suspect]
     Active Substance: LEVOCETIRIZINE DIHYDROCHLORIDE
     Indication: Swollen tongue
  10. ALLEGRA [Suspect]
     Active Substance: FEXOFENADINE HYDROCHLORIDE
     Indication: Paraesthesia
     Route: 065
  11. ALLEGRA [Suspect]
     Active Substance: FEXOFENADINE HYDROCHLORIDE
     Indication: Angioedema
  12. ALLEGRA [Suspect]
     Active Substance: FEXOFENADINE HYDROCHLORIDE
     Indication: Pharyngeal swelling
  13. ALLEGRA [Suspect]
     Active Substance: FEXOFENADINE HYDROCHLORIDE
     Indication: Swollen tongue
  14. PREDNISONE [Suspect]
     Active Substance: PREDNISONE
     Indication: Paraesthesia
     Route: 065
  15. PREDNISONE [Suspect]
     Active Substance: PREDNISONE
     Indication: Angioedema
  16. PREDNISONE [Suspect]
     Active Substance: PREDNISONE
     Indication: Pharyngeal swelling
  17. PREDNISONE [Suspect]
     Active Substance: PREDNISONE
     Indication: Swollen tongue
  18. LORATADINE [Suspect]
     Active Substance: LORATADINE
     Indication: Paraesthesia
     Route: 065
  19. LORATADINE [Suspect]
     Active Substance: LORATADINE
     Indication: Angioedema
  20. LORATADINE [Suspect]
     Active Substance: LORATADINE
     Indication: Pharyngeal swelling
  21. LORATADINE [Suspect]
     Active Substance: LORATADINE
     Indication: Swollen tongue
  22. ACETAMINOPHEN [Suspect]
     Active Substance: ACETAMINOPHEN
     Indication: Injection site pain
     Route: 065

REACTIONS (3)
  - Paraesthesia [Unknown]
  - Headache [Unknown]
  - Adverse drug reaction [Unknown]
